FAERS Safety Report 9677130 (Version 1)
Quarter: 2013Q4

REPORT INFORMATION
  Report Type: Spontaneous
  Country: US (occurrence: US)
  Receive Date: 20131108
  Receipt Date: 20131108
  Transmission Date: 20140711
  Serious: Yes (Hospitalization, Other)
  Sender: FDA-Public Use
  Company Number: US-AMGEN-USASP2013077680

PATIENT
  Age: 70 Year
  Sex: Male

DRUGS (3)
  1. NEULASTA [Suspect]
     Indication: PRODUCT USED FOR UNKNOWN INDICATION
     Dosage: UNK UNK, AFTER CHEMO
     Route: 065
  2. CHEMOTHERAPEUTICS [Concomitant]
     Indication: MYELODYSPLASTIC SYNDROME
     Dosage: UNK
  3. VIDAZA [Concomitant]
     Dosage: UNK
     Dates: start: 20131021, end: 20131025

REACTIONS (3)
  - Investigation [Unknown]
  - Splenomegaly [Unknown]
  - Neutrophil count increased [Unknown]
